FAERS Safety Report 8200555-5 (Version None)
Quarter: 2012Q1

REPORT INFORMATION
  Report Type: 
  Country: None (occurrence: None)
  Receive Date: 20120306
  Receipt Date: 20120227
  Transmission Date: 20120608
  Serious: Yes (Death)
  Sender: FDA-Public Use
  Company Number: 2010003342

PATIENT
  Age: 75 Year
  Sex: Male

DRUGS (2)
  1. TARCEVA [Suspect]
     Indication: PRODUCT USED FOR UNKNOWN INDICATION
     Dosage: 150 MG, UID/QD,ORAL ; 150 MG, UID/QD, ORAL
     Route: 048
     Dates: start: 20100723, end: 20100801
  2. TARCEVA [Suspect]
     Indication: PRODUCT USED FOR UNKNOWN INDICATION
     Dosage: 150 MG, UID/QD,ORAL ; 150 MG, UID/QD, ORAL
     Route: 048
     Dates: start: 20100809, end: 20120103

REACTIONS (2)
  - DEHYDRATION [None]
  - DIARRHOEA [None]
